FAERS Safety Report 20618564 (Version 1)
Quarter: 2022Q1

REPORT INFORMATION
  Report Type: Report from Study
  Country: US (occurrence: US)
  Receive Date: 20220321
  Receipt Date: 20220321
  Transmission Date: 20220424
  Serious: Yes (Hospitalization, Other)
  Sender: FDA-Public Use
  Company Number: US-ABBVIE-21K-163-4120464-00

PATIENT
  Sex: Female

DRUGS (3)
  1. HUMIRA [Suspect]
     Active Substance: ADALIMUMAB
     Indication: Psoriatic arthropathy
     Route: 058
     Dates: start: 20210905
  2. HUMIRA [Suspect]
     Active Substance: ADALIMUMAB
     Route: 058
  3. HUMIRA [Suspect]
     Active Substance: ADALIMUMAB
     Route: 058

REACTIONS (14)
  - Loss of consciousness [Unknown]
  - Pulmonary embolism [Recovered/Resolved]
  - Dysstasia [Not Recovered/Not Resolved]
  - Gait disturbance [Not Recovered/Not Resolved]
  - Mobility decreased [Not Recovered/Not Resolved]
  - Loss of personal independence in daily activities [Not Recovered/Not Resolved]
  - Therapeutic product effect variable [Unknown]
  - Concussion [Unknown]
  - Thrombosis [Unknown]
  - Hypotension [Unknown]
  - Vertigo [Unknown]
  - Fall [Unknown]
  - Intervertebral disc protrusion [Unknown]
  - Pain [Unknown]

NARRATIVE: CASE EVENT DATE: 20210101
